FAERS Safety Report 9929576 (Version 3)
Quarter: 2014Q2

REPORT INFORMATION
  Report Type: Spontaneous
  Country: US (occurrence: US)
  Receive Date: 20140227
  Receipt Date: 20140502
  Transmission Date: 20141212
  Serious: Yes (Death, Hospitalization, Other)
  Sender: FDA-Public Use
  Company Number: US-BAXTER-2014BAX009148

PATIENT
  Sex: Female

DRUGS (4)
  1. DIANEAL PD2 [Suspect]
     Indication: RENAL FAILURE CHRONIC
     Route: 033
     Dates: start: 2011, end: 20140312
  2. DIANEAL PD2 [Suspect]
     Indication: PERITONEAL DIALYSIS
  3. DIANEAL PD2 [Suspect]
     Indication: RENAL FAILURE CHRONIC
     Route: 033
     Dates: start: 2011, end: 20140312
  4. DIANEAL PD2 [Suspect]
     Indication: PERITONEAL DIALYSIS

REACTIONS (6)
  - Sepsis [Fatal]
  - Ischaemic stroke [Recovering/Resolving]
  - Blindness unilateral [Not Recovered/Not Resolved]
  - Unresponsive to stimuli [Unknown]
  - Urinary tract infection [Unknown]
  - Hypotension [Unknown]
